FAERS Safety Report 11224279 (Version 1)
Quarter: 2015Q2

REPORT INFORMATION
  Report Type: Spontaneous
  Country: US (occurrence: None)
  Receive Date: 20150626
  Receipt Date: 20150626
  Transmission Date: 20150821
  Serious: Yes (Hospitalization)
  Sender: FDA-Public Use
  Company Number: None

PATIENT
  Age: 66 Year
  Sex: Male
  Weight: 59.1 kg

DRUGS (4)
  1. VINCRISTINE SULFATE. [Suspect]
     Active Substance: VINCRISTINE SULFATE
     Dates: end: 20141206
  2. METHOTREXATE [Suspect]
     Active Substance: METHOTREXATE
     Dates: end: 20141206
  3. RITUXIMAB (MOAB C2B8 ANTI CD20, CHIMERIC) [Suspect]
     Active Substance: RITUXIMAB
     Dates: end: 20141204
  4. PROCARBAZINE [Suspect]
     Active Substance: PROCARBAZINE
     Dates: end: 20141206

REACTIONS (8)
  - Tachycardia [None]
  - Tachypnoea [None]
  - Cholecystitis [None]
  - Hypophagia [None]
  - Nausea [None]
  - Abdominal pain lower [None]
  - Vomiting [None]
  - Abdominal pain upper [None]

NARRATIVE: CASE EVENT DATE: 20150126
